FAERS Safety Report 9788816 (Version 2)
Quarter: 2014Q1

REPORT INFORMATION
  Report Type: Spontaneous
  Country: US (occurrence: US)
  Receive Date: 20131230
  Receipt Date: 20140211
  Transmission Date: 20141002
  Serious: Yes (Hospitalization)
  Sender: FDA-Public Use
  Company Number: US-NOVOPROD-396239

PATIENT
  Age: 44 Year
  Sex: Male
  Weight: 78.91 kg

DRUGS (3)
  1. NORDITROPIN FLEXPRO 6.7 MG/ML [Suspect]
     Indication: DWARFISM
     Dosage: 0.5 MG, QD, INITIATED BETWEEN 2007-2008
     Route: 058
  2. DDAVP                              /00361901/ [Concomitant]
     Indication: PRODUCT USED FOR UNKNOWN INDICATION
     Dosage: 1 SPRAY IN EACH NOSTRIL DAILY
     Route: 045
  3. COUMADIN                           /00014802/ [Concomitant]
     Indication: PRODUCT USED FOR UNKNOWN INDICATION

REACTIONS (1)
  - Epistaxis [Recovered/Resolved]
